FAERS Safety Report 9200818 (Version 1)
Quarter: 2013Q1

REPORT INFORMATION
  Report Type: Spontaneous
  Country: US (occurrence: None)
  Receive Date: 20130328
  Receipt Date: 20130328
  Transmission Date: 20140127
  Serious: Yes (Hospitalization)
  Sender: FDA-Public Use
  Company Number: None

PATIENT
  Age: 73 Year
  Sex: Male
  Weight: 78.7 kg

DRUGS (6)
  1. IBRUTINIB [Suspect]
     Indication: WALDENSTROM^S MACROGLOBULINAEMIA
     Route: 048
     Dates: start: 20121015, end: 20130101
  2. ASPIRIN (ACETYLSALICYLIC ACID) [Concomitant]
  3. BENAZEPRIL [Concomitant]
  4. NEXIUM [Concomitant]
  5. SIMVASTATIN [Concomitant]
  6. MULTIVITAMINS [Concomitant]

REACTIONS (3)
  - Dehydration [None]
  - Influenza [None]
  - Hypophagia [None]
